FAERS Safety Report 19602722 (Version 4)
Quarter: 2021Q3

REPORT INFORMATION
  Report Type: Report from Study
  Country: US (occurrence: US)
  Receive Date: 20210723
  Receipt Date: 20210831
  Transmission Date: 20211014
  Serious: Yes (Hospitalization, Other)
  Sender: FDA-Public Use
  Company Number: US-GILEAD-2021-0541213

PATIENT
  Age: 93 Year
  Sex: Female
  Weight: 67.12 kg

DRUGS (26)
  1. AZTREONAM LYSINE [Suspect]
     Active Substance: AZTREONAM LYSINE
     Indication: ANTICOAGULANT THERAPY
  2. AZTREONAM LYSINE [Suspect]
     Active Substance: AZTREONAM LYSINE
     Indication: ATRIAL FIBRILLATION
  3. PANTOPRAZOLE [Concomitant]
     Active Substance: PANTOPRAZOLE
  4. AZTREONAM LYSINE [Suspect]
     Active Substance: AZTREONAM LYSINE
     Indication: SLEEP APNOEA SYNDROME
  5. BENZONATATE. [Concomitant]
     Active Substance: BENZONATATE
  6. CALCIUM CARBONATE. [Concomitant]
     Active Substance: CALCIUM CARBONATE
  7. WARFARIN [Concomitant]
     Active Substance: WARFARIN
  8. AZTREONAM LYSINE [Suspect]
     Active Substance: AZTREONAM LYSINE
     Indication: ASTHMA
  9. AZTREONAM LYSINE [Suspect]
     Active Substance: AZTREONAM LYSINE
     Indication: LUNG DISORDER
  10. AZTREONAM LYSINE [Suspect]
     Active Substance: AZTREONAM LYSINE
     Indication: BRONCHIECTASIS
  11. METOLAZONE. [Concomitant]
     Active Substance: METOLAZONE
  12. POTASSIUM CHLORIDE. [Concomitant]
     Active Substance: POTASSIUM CHLORIDE
  13. AZTREONAM LYSINE [Suspect]
     Active Substance: AZTREONAM LYSINE
     Indication: CYSTIC FIBROSIS
     Dosage: 75 MG, TID
     Route: 055
     Dates: start: 20210602, end: 20210704
  14. AZTREONAM LYSINE [Suspect]
     Active Substance: AZTREONAM LYSINE
     Indication: PSEUDOMONAS INFECTION
  15. AZTREONAM LYSINE [Suspect]
     Active Substance: AZTREONAM LYSINE
     Indication: PNEUMONIA PSEUDOMONAL
  16. LAXISOFT [Concomitant]
  17. FAMOTIDINE. [Concomitant]
     Active Substance: FAMOTIDINE
  18. PREGABALIN. [Concomitant]
     Active Substance: PREGABALIN
  19. PREDNISONE. [Concomitant]
     Active Substance: PREDNISONE
  20. ACETAMINOPHEN. [Concomitant]
     Active Substance: ACETAMINOPHEN
  21. CHOLECALCIFEROL [Concomitant]
     Active Substance: CHOLECALCIFEROL
  22. FUROSEMIDE. [Concomitant]
     Active Substance: FUROSEMIDE
  23. SENNOSIDES. [Concomitant]
     Active Substance: SENNOSIDES
  24. ALBUTEROL [SALBUTAMOL] [Concomitant]
     Active Substance: ALBUTEROL
  25. FLUTICASONE. [Concomitant]
     Active Substance: FLUTICASONE
  26. GUAIFENESIN. [Concomitant]
     Active Substance: GUAIFENESIN

REACTIONS (4)
  - Pseudomonas infection [Unknown]
  - Acute kidney injury [Unknown]
  - Product dose omission issue [Not Recovered/Not Resolved]
  - Disease progression [Recovering/Resolving]

NARRATIVE: CASE EVENT DATE: 20210610
